FAERS Safety Report 4511771-8 (Version None)
Quarter: 2004Q4

REPORT INFORMATION
  Report Type: 
  Country: None (occurrence: None)
  Receive Date: 20041122
  Receipt Date: 20041110
  Transmission Date: 20050328
  Serious: Yes (Hospitalization)
  Sender: FDA-Public Use
  Company Number: 2004091859

PATIENT
  Age: 65 Year
  Sex: Male
  Weight: 74.8435 kg

DRUGS (5)
  1. LIPITOR [Suspect]
     Indication: BLOOD CHOLESTEROL INCREASED
     Dosage: 10 MG (10 MG, 1 IN 1 D)
     Dates: start: 20040401, end: 20040801
  2. LISTERINE (MENTHOL, METHYL SALICYLATE, EUCALYPTOL THYMOL) [Suspect]
     Indication: TOOTH DEPOSIT
     Dosage: 3/4 DIXIE CUP
  3. LISINOPRIL [Concomitant]
  4. TERAZOSIN (TERAZOSIN) [Concomitant]
  5. METFORMIN HCL [Concomitant]

REACTIONS (4)
  - ANAEMIA [None]
  - BLOOD CHOLESTEROL DECREASED [None]
  - BLOOD CHOLESTEROL INCREASED [None]
  - HYPERTENSION [None]
